FAERS Safety Report 13467589 (Version 2)
Quarter: 2017Q3

REPORT INFORMATION
  Report Type: Report from Study
  Country: US (occurrence: US)
  Receive Date: 20170421
  Receipt Date: 20170714
  Transmission Date: 20171127
  Serious: Yes (Other)
  Sender: FDA-Public Use
  Company Number: US-AMGEN-USASL2017059063

PATIENT
  Age: 66 Year
  Sex: Male

DRUGS (1)
  1. NPLATE [Suspect]
     Active Substance: ROMIPLOSTIM
     Indication: IMMUNE THROMBOCYTOPENIC PURPURA
     Dosage: 0.5 MCG/KG, EVERY 10 TO 11 DAYS
     Route: 065

REACTIONS (4)
  - Hypercoagulation [Unknown]
  - Off label use [Unknown]
  - Platelet count abnormal [Unknown]
  - Drug effect variable [Not Recovered/Not Resolved]
